FAERS Safety Report 22041493 (Version 1)
Quarter: 2023Q1

REPORT INFORMATION
  Report Type: Spontaneous
  Country: FR (occurrence: FR)
  Receive Date: 20230227
  Receipt Date: 20230227
  Transmission Date: 20230417
  Serious: Yes (Hospitalization)
  Sender: FDA-Public Use
  Company Number: None

PATIENT
  Age: 43 Year
  Sex: Female
  Weight: 68 kg

DRUGS (9)
  1. OXALIPLATIN [Suspect]
     Active Substance: OXALIPLATIN
     Indication: Pseudomyxoma peritonei
     Route: 042
     Dates: start: 20221014, end: 20221014
  2. FLUOROURACIL [Suspect]
     Active Substance: FLUOROURACIL
     Indication: Pseudomyxoma peritonei
     Route: 042
     Dates: start: 20221014, end: 20221014
  3. LEVOLEUCOVORIN CALCIUM [Concomitant]
     Active Substance: LEVOLEUCOVORIN CALCIUM
     Indication: Chemotherapy side effect prophylaxis
     Route: 042
     Dates: start: 20221014, end: 20221014
  4. TELMISARTAN [Concomitant]
     Active Substance: TELMISARTAN
     Indication: Hypertension
     Route: 048
  5. LEVOTHYROX 100 microgrammes, scored tablet [Concomitant]
     Indication: Hypothyroidism
     Route: 048
  6. MORPHINE SULFATE [Concomitant]
     Active Substance: MORPHINE SULFATE
     Indication: Cancer pain
     Route: 048
  7. TEMERIT 5 mg, double-scored tablet [Concomitant]
     Indication: Hypertension
     Route: 048
  8. SOLUPRED 20 mg, orodispersible tablet [Concomitant]
     Indication: Chemotherapy side effect prophylaxis
     Route: 048
  9. SKENAN L.P. 30 mg, microgranules extended-release microgranules in cap [Concomitant]
     Indication: Cancer pain
     Route: 048

REACTIONS (1)
  - Pulmonary embolism [Recovering/Resolving]

NARRATIVE: CASE EVENT DATE: 20221126
